FAERS Safety Report 22179624 (Version 1)
Quarter: 2023Q2

REPORT INFORMATION
  Report Type: Other
  Country: IT (occurrence: None)
  Receive Date: 20230406
  Receipt Date: 20230406
  Transmission Date: 20230721
  Serious: No
  Sender: FDA-Public Use
  Company Number: IT-ROCHE-3322281

PATIENT
  Age: 45 Year
  Sex: Female
  Weight: 54 kg

DRUGS (7)
  1. OCRELIZUMAB [Suspect]
     Active Substance: OCRELIZUMAB
     Indication: Secondary progressive multiple sclerosis
     Dosage: SUBSEQUENT DOSE ON 24/JUL/2020
     Route: 042
     Dates: start: 20200708
  2. OCRELIZUMAB [Suspect]
     Active Substance: OCRELIZUMAB
     Route: 042
     Dates: start: 20210127, end: 20210127
  3. OCRELIZUMAB [Suspect]
     Active Substance: OCRELIZUMAB
     Route: 042
     Dates: start: 20220714, end: 20220714
  4. OCRELIZUMAB [Suspect]
     Active Substance: OCRELIZUMAB
     Route: 042
     Dates: start: 20210713, end: 20210713
  5. OCRELIZUMAB [Suspect]
     Active Substance: OCRELIZUMAB
     Route: 042
     Dates: start: 20220117, end: 20220117
  6. OCRELIZUMAB [Suspect]
     Active Substance: OCRELIZUMAB
     Route: 042
     Dates: start: 20230303, end: 20230303
  7. NABIXIMOLS [Concomitant]
     Active Substance: NABIXIMOLS
     Route: 048
     Dates: start: 20220117

REACTIONS (1)
  - Influenza [Recovered/Resolved]

NARRATIVE: CASE EVENT DATE: 20230206
